FAERS Safety Report 13483567 (Version 3)
Quarter: 2017Q2

REPORT INFORMATION
  Report Type: Spontaneous
  Country: US (occurrence: US)
  Receive Date: 20170426
  Receipt Date: 20170428
  Transmission Date: 20170830
  Serious: No
  Sender: FDA-Public Use
  Company Number: US-BEH-2017079892

PATIENT
  Age: 30 Year
  Sex: Female

DRUGS (2)
  1. STIMATE [Suspect]
     Active Substance: DESMOPRESSIN ACETATE
     Indication: VON WILLEBRAND^S DISEASE
     Dosage: 1 SPRAY, Q24HRS, 3 DAYS PRN BLEEDS
     Route: 045
     Dates: start: 20140514
  2. HUMATE-P [Suspect]
     Active Substance: HUMAN COAGULATION FACTOR VIII/VON WILLEBRAND FACTOR COMPLEX
     Indication: VON WILLEBRAND^S DISEASE
     Dosage: 3600 RCOF UNITS DAILY X3 DAYS, PRN
     Route: 042
     Dates: start: 20140514

REACTIONS (2)
  - Epistaxis [Unknown]
  - Contusion [Unknown]
